FAERS Safety Report 9312351 (Version 1)
Quarter: 2013Q2

REPORT INFORMATION
  Report Type: Spontaneous
  Country: US (occurrence: None)
  Receive Date: 20130509
  Receipt Date: 20130509
  Transmission Date: 20140414
  Serious: Yes (Other)
  Sender: FDA-Public Use
  Company Number: 2013035707

PATIENT
  Age: 65 Year
  Sex: Male
  Weight: 138.35 kg

DRUGS (29)
  1. HIZENTRA (IMMUNOGLOBULIN HUMAN NORMAL) [Suspect]
     Indication: IMMUNODEFICIENCY COMMON VARIABLE
     Route: 058
     Dates: start: 20130425, end: 20130425
  2. HIZENTRA (IMMUNOGLOBULIN HUMAN NORMAL) [Suspect]
     Indication: OBESITY
     Route: 058
     Dates: start: 20130425, end: 20130425
  3. HIZENTRA (IMMUNOGLOBULIN HUMAN NORMAL) [Suspect]
     Indication: LYMPHOMA
     Route: 058
     Dates: start: 20130425, end: 20130425
  4. CLONAZEPAM (CLONAZEPAM) (CLONAZEPAM) [Concomitant]
  5. SOTALOL [Concomitant]
  6. LEXAPRO (ESCITALOPRAM OXALATE) [Concomitant]
  7. CYMBALTA (DULOXETINE HYDROCHLORIDE) [Concomitant]
  8. COREG (CARVEDILOL) [Concomitant]
  9. POTASSIUM CL ER (POTASSIUM CHLORIDE) [Concomitant]
  10. TRAMADOL (TRAMADOL) [Concomitant]
  11. ALLOPURINOL [Concomitant]
  12. COUMADIN (WARFARIN SODIUM) [Concomitant]
  13. METOLAZONE (METOLAZONE) [Concomitant]
  14. DEPO-TESTOSTERONE (TESTOSTERONE CIPIONATE) [Concomitant]
  15. LOPERAMIDE (LOPERAMIDE) [Concomitant]
  16. MULTIVITAMIN (DAILY MULTIVITAMIN) [Concomitant]
  17. PROCHLORPERAZINE (PROCHLORPERAZINE) [Concomitant]
  18. SULFASALAZINE (SULFASALZINE) [Concomitant]
  19. MAGNESIUM (MAGNESIUM) [Concomitant]
  20. ASPIRIN (ACETYLSALICYCLIC ACID) [Concomitant]
  21. OMEGA-3 FISH OIL (FISH OIL) [Concomitant]
  22. LORTAB (LORTAB/01744401/) [Concomitant]
  23. TYLENOL (PARACETAMOL) [Concomitant]
  24. DIPHENYDRAMINE (DIPHENHYDRAMINE) [Concomitant]
  25. LIDOCAINE/PRILOCAINE (EMLA/00675501/) [Concomitant]
  26. EPI-PEN (EPINEPHRINE) [Concomitant]
  27. KETOROLAC (KETOROLAC) [Concomitant]
  28. FUROSEMIDE (FUROSEMIDE) [Concomitant]
  29. LISINOPRIL (LISINOPRIL) [Concomitant]

REACTIONS (2)
  - Tremor [None]
  - Shock [None]
